FAERS Safety Report 7720409-8 (Version None)
Quarter: 2011Q3

REPORT INFORMATION
  Report Type: 
  Country: None (occurrence: None)
  Receive Date: 20110831
  Receipt Date: 20110825
  Transmission Date: 20111222
  Serious: Yes (Hospitalization)
  Sender: FDA-Public Use
  Company Number: US-B.I. PHARMACEUTICALS,INC./RIDGEFIELD-2011-BP-18071BP

PATIENT
  Sex: Male
  Weight: 96.62 kg

DRUGS (6)
  1. LASIX [Concomitant]
     Dosage: 40 MG
  2. CRESTOR [Concomitant]
     Dosage: 20 MG
  3. METOPROLOL TARTRATE [Concomitant]
     Dosage: 200 MG
  4. PRADAXA [Suspect]
     Indication: ATRIAL FIBRILLATION
     Route: 048
     Dates: end: 20110705
  5. LEVOXYL [Concomitant]
     Dosage: 50 MG
  6. ALLOPURINOL [Concomitant]
     Dosage: 300 MG

REACTIONS (2)
  - OEDEMA [None]
  - OEDEMA PERIPHERAL [None]
